FAERS Safety Report 5239843-3 (Version None)
Quarter: 2007Q1

REPORT INFORMATION
  Report Type: 
  Country: None (occurrence: None)
  Receive Date: 20070214
  Receipt Date: 20070214
  Transmission Date: 20070707
  Serious: Yes (Other)
  Sender: FDA-Public Use
  Company Number: None

PATIENT
  Sex: Female
  Weight: 70.3075 kg

DRUGS (1)
  1. EVISTA [Suspect]
     Indication: OSTEOPENIA
     Dosage: 60 MG 1 / NIGHT PO
     Route: 048
     Dates: start: 20030801, end: 20061213

REACTIONS (3)
  - URINARY BLADDER HAEMORRHAGE [None]
  - URINARY INCONTINENCE [None]
  - URINARY TRACT INFECTION [None]
